FAERS Safety Report 9972829 (Version 1)
Quarter: 2014Q1

REPORT INFORMATION
  Report Type: Spontaneous
  Country: US (occurrence: US)
  Receive Date: 20140306
  Receipt Date: 20140306
  Transmission Date: 20141002
  Serious: Yes (Life-Threatening, Hospitalization, Other)
  Sender: FDA-Public Use
  Company Number: US-B.I. PHARMACEUTICALS,INC./RIDGEFIELD-2014-BI-09556GD

PATIENT
  Age: 85 Year
  Sex: Male
  Weight: 75 kg

DRUGS (4)
  1. PRADAXA [Suspect]
     Indication: ATRIAL FIBRILLATION
     Dosage: 300 MG
     Route: 048
  2. ATORVASTATIN [Concomitant]
     Dosage: 10 MG
     Route: 065
  3. LOSARTAN-HYDROCHLOROTHIAZIDE [Concomitant]
     Dosage: 50-12.5MG DAILY
     Route: 065
  4. OMEPRAZOLE [Concomitant]
     Dosage: 20 MG
     Route: 065

REACTIONS (4)
  - Basal ganglia haemorrhage [Unknown]
  - Thalamus haemorrhage [Unknown]
  - Brain midline shift [Unknown]
  - Cerebral haematoma [Unknown]
